FAERS Safety Report 21932110 (Version 2)
Quarter: 2023Q1

REPORT INFORMATION
  Report Type: Report from Study
  Country: IT (occurrence: IT)
  Receive Date: 20230131
  Receipt Date: 20230221
  Transmission Date: 20230418
  Serious: Yes (Other)
  Sender: FDA-Public Use
  Company Number: IT-ROCHE-3225548

PATIENT
  Age: 45 Year
  Sex: Female
  Weight: 65 kg

DRUGS (35)
  1. EXEMESTANE [Suspect]
     Active Substance: EXEMESTANE
     Indication: HER2 positive breast cancer
     Dosage: 25 MG, QD, MOST RECENT DOSE ON 03/AUG/2020
     Route: 048
     Dates: start: 20171019
  2. DOCETAXEL [Suspect]
     Active Substance: DOCETAXEL
     Indication: HER2 positive breast cancer
     Dosage: 60 MG/SQ. METER,Q3W(PRIOR TO EVENT: 09/MAY/2017)
     Route: 042
     Dates: start: 20170418, end: 20170418
  3. DOCETAXEL [Suspect]
     Active Substance: DOCETAXEL
     Dosage: 60 MG/SQ. METER,Q3W(PRIOR TO EVENT: 09/MAY/2017)
     Route: 042
     Dates: start: 20170509, end: 20170928
  4. TRASTUZUMAB [Suspect]
     Active Substance: TRASTUZUMAB
     Indication: HER2 positive breast cancer
     Dosage: 8 MG/KG, Q3W (PRIOR TO EVENT: 09/MAY/2017)
     Route: 042
     Dates: start: 20170418, end: 20170418
  5. TRASTUZUMAB [Suspect]
     Active Substance: TRASTUZUMAB
     Dosage: 6 MILLIGRAM/KILOGRAM, Q3W
     Route: 042
     Dates: start: 20170509, end: 20200803
  6. TRASTUZUMAB [Suspect]
     Active Substance: TRASTUZUMAB
     Dosage: 490 MILLIGRAM, Q3W
     Route: 042
     Dates: start: 20221121, end: 20230109
  7. PERTUZUMAB [Suspect]
     Active Substance: PERTUZUMAB
     Indication: HER2 positive breast cancer
     Dosage: 840 MG, Q3W (PRIOR TO THE EVENT: 09/MAY/2017)
     Route: 042
     Dates: start: 20170418, end: 20170418
  8. ADO-TRASTUZUMAB EMTANSINE [Suspect]
     Active Substance: ADO-TRASTUZUMAB EMTANSINE
     Indication: HER2 positive breast cancer
     Dosage: 3.6 MILLIGRAM/KILOGRAM, Q3W
     Route: 042
     Dates: start: 20200803
  9. LEUPROLIDE ACETATE [Suspect]
     Active Substance: LEUPROLIDE ACETATE
     Indication: HER2 positive breast cancer
     Dosage: 3.75 MILLIGRAM, MONTHLY
     Route: 058
     Dates: start: 20171019
  10. LEVETIRACETAM [Concomitant]
     Active Substance: LEVETIRACETAM
     Dosage: UNK, ONGOING = CHECKED
     Route: 065
     Dates: start: 20210614
  11. MOVICOL [Concomitant]
     Active Substance: POLYETHYLENE GLYCOL 3350\POTASSIUM CHLORIDE\SODIUM BICARBONATE\SODIUM CHLORIDE
     Dosage: UNK, ONGOING = CHECKED
     Route: 065
     Dates: start: 20220413
  12. ENANTONE LP [Concomitant]
     Active Substance: LEUPROLIDE ACETATE
     Dosage: UNK
     Route: 065
  13. FOLIC ACID [Concomitant]
     Active Substance: FOLIC ACID
     Dosage: UNK, ONGOING = CHECKED
     Route: 065
     Dates: start: 20220622
  14. FUROSEMIDE [Concomitant]
     Active Substance: FUROSEMIDE
     Dosage: UNK, ONGOING = CHECKED
     Route: 065
     Dates: start: 20221012
  15. CHLORPHENIRAMINE MALEATE [Concomitant]
     Active Substance: CHLORPHENIRAMINE MALEATE
     Dosage: UNK, ONGOING = CHECKED
     Route: 065
     Dates: start: 20170718
  16. CYANOCOBALAMIN\PYRIDOXINE\THIAMINE [Concomitant]
     Active Substance: CYANOCOBALAMIN\PYRIDOXINE\THIAMINE
     Dosage: UNK, ONGOING = CHECKED
     Route: 065
     Dates: start: 20220622
  17. Tiobec [Concomitant]
     Dosage: UNK, ONGOING = CHECKED
     Route: 065
     Dates: start: 20220622
  18. CYMBALTA [Concomitant]
     Active Substance: DULOXETINE HYDROCHLORIDE
     Dosage: UNK, ONGOING = NOT CHECKED
     Route: 065
     Dates: start: 20220622, end: 20221108
  19. Varcodes [Concomitant]
     Dosage: UNK, ONGOING = CHECKED
     Route: 065
     Dates: start: 20220727
  20. Varcodes [Concomitant]
     Dosage: UNK,ONGOING = CHECKED
     Route: 065
     Dates: start: 20220921
  21. LANSOPRAZOLE [Concomitant]
     Active Substance: LANSOPRAZOLE
     Dosage: UNK, ONGOING = CHECKED
     Route: 065
     Dates: start: 20201005
  22. DIETARY SUPPLEMENT\HERBALS\MILK THISTLE [Concomitant]
     Active Substance: DIETARY SUPPLEMENT\HERBALS\MILK THISTLE
     Dosage: UNK, ONGOING = NOT CHECKED
     Route: 065
     Dates: start: 20220316, end: 20221109
  23. OXYCODONE [Concomitant]
     Active Substance: OXYCODONE
     Dosage: UNK, ONGOING = CHECKED
     Route: 065
     Dates: start: 20221109
  24. ALDACTONE [Concomitant]
     Active Substance: SPIRONOLACTONE
     Dosage: UNK, ONGOING = CHECKED
     Route: 065
     Dates: start: 20221012
  25. KEFIBIOS [Concomitant]
     Dosage: UNK
     Route: 065
  26. APREPITANT [Concomitant]
     Active Substance: APREPITANT
     Dosage: UNK
     Route: 065
  27. ZOMETA [Concomitant]
     Active Substance: ZOLEDRONIC ACID
     Dosage: UNK
     Route: 065
  28. DEXAMETHASONE [Concomitant]
     Active Substance: DEXAMETHASONE
     Dosage: UNK
     Route: 065
  29. LEVOSULPIRIDE [Concomitant]
     Active Substance: LEVOSULPIRIDE
     Dosage: UNK
     Route: 065
  30. TOBRADEX [Concomitant]
     Active Substance: DEXAMETHASONE\TOBRAMYCIN
     Dosage: UNK
     Route: 065
  31. AMITRIPTYLINE HYDROCHLORIDE [Concomitant]
     Active Substance: AMITRIPTYLINE HYDROCHLORIDE
     Dosage: UNK
     Route: 065
  32. NETTACIN [Concomitant]
     Dosage: UNK
     Route: 065
  33. FILGRASTIM [Concomitant]
     Active Substance: FILGRASTIM
     Dosage: UNK
     Route: 065
  34. PREDNISONE [Concomitant]
     Active Substance: PREDNISONE
     Dosage: UNK
     Route: 065
  35. IMIDAZYL [Concomitant]
     Dosage: UNK
     Route: 065

REACTIONS (2)
  - Deep vein thrombosis [Not Recovered/Not Resolved]
  - Ascites [Recovered/Resolved]

NARRATIVE: CASE EVENT DATE: 20220824
